FAERS Safety Report 13482795 (Version 2)
Quarter: 2017Q3

REPORT INFORMATION
  Report Type: Report from Study
  Country: US (occurrence: US)
  Receive Date: 20170424
  Receipt Date: 20170728
  Transmission Date: 20171127
  Serious: No
  Sender: FDA-Public Use
  Company Number: US-AMGEN-USASL2017034643

PATIENT
  Age: 58 Year
  Sex: Male

DRUGS (11)
  1. ASA [Concomitant]
     Active Substance: ASPIRIN
     Dosage: 81 MG, QD
  2. CURCUMIN [Concomitant]
     Active Substance: CURCUMIN
     Dosage: UNK, BID
  3. VITAMIN D [Concomitant]
     Active Substance: CHOLECALCIFEROL
     Dosage: 5000 UNIT, UNK
  4. ALPHA LIPOIC ACID [Concomitant]
     Active Substance: .ALPHA.-LIPOIC ACID
     Dosage: UNK, QD
  5. CACAO MINAR [Concomitant]
     Dosage: UNK, BID
  6. ATORVASTATIN [Concomitant]
     Active Substance: ATORVASTATIN
     Dosage: 40 MG, QD
  7. VITAMIN C [Concomitant]
     Active Substance: ASCORBIC ACID
     Dosage: 1000 MG, QD
  8. REPATHA [Suspect]
     Active Substance: EVOLOCUMAB
     Indication: HYPERCHOLESTEROLAEMIA
     Dosage: 140 MG, Q2WK
     Route: 065
     Dates: start: 20170220
  9. RESVERATROL [Concomitant]
     Active Substance: DIETARY SUPPLEMENT\RESVERATROL
     Dosage: UNK, QD
  10. FISH OIL [Concomitant]
     Active Substance: FISH OIL
     Dosage: UNK, QD
     Route: 048
  11. FLAXSEED [Concomitant]
     Active Substance: FLAX SEED
     Dosage: UNK, BID

REACTIONS (8)
  - Nasal congestion [Recovered/Resolved]
  - Sinus disorder [Recovered/Resolved]
  - Injection site pain [Recovered/Resolved]
  - Oropharyngeal pain [Recovered/Resolved]
  - Sinus congestion [Unknown]
  - Fear of injection [Unknown]
  - Weight decreased [Recovered/Resolved]
  - Anxiety [Unknown]

NARRATIVE: CASE EVENT DATE: 2017
